FAERS Safety Report 8499905-4 (Version None)
Quarter: 2012Q3

REPORT INFORMATION
  Report Type: 
  Country: None (occurrence: None)
  Receive Date: 20120710
  Receipt Date: 20120705
  Transmission Date: 20120928
  Serious: Yes (Hospitalization, Disabling)
  Sender: FDA-Public Use
  Company Number: PHHY2012FI057995

PATIENT
  Sex: Female

DRUGS (11)
  1. FOSAMAX [Suspect]
     Dosage: 70 MG, PER WEEK
     Dates: start: 20000101
  2. ZOLEDRONOC ACID [Suspect]
     Dosage: 5 MG, UNK
     Route: 042
     Dates: start: 20110101, end: 20110101
  3. ANTIBIOTICS [Concomitant]
     Indication: INFECTION
  4. BONIVA [Suspect]
     Dosage: 150 MG, PER MONTH
     Dates: start: 20070101
  5. CALCIUM WITH VITAMIN D [Concomitant]
  6. ZOLEDRONOC ACID [Suspect]
     Indication: OSTEOPOROSIS
     Dosage: 5 MG, UNK
     Route: 042
     Dates: start: 20100101
  7. DIDRONATE + CALSIUM [Suspect]
  8. HUMIRA [Concomitant]
  9. MEDROL [Concomitant]
     Dosage: 2 MG, QD
  10. STEROID [Concomitant]
     Dates: start: 19800101
  11. ENOXAPARIN SODIUM [Concomitant]

REACTIONS (19)
  - SKIN ATROPHY [None]
  - CERVICAL VERTEBRAL FRACTURE [None]
  - FEMUR FRACTURE [None]
  - FRACTURE DELAYED UNION [None]
  - FRACTURE NONUNION [None]
  - CUSHING'S SYNDROME [None]
  - ATYPICAL FEMUR FRACTURE [None]
  - PAIN IN EXTREMITY [None]
  - POST PROCEDURAL PULMONARY EMBOLISM [None]
  - HYPERKERATOSIS [None]
  - PAIN [None]
  - FALL [None]
  - HAND FRACTURE [None]
  - BONE DISORDER [None]
  - MUSCULAR WEAKNESS [None]
  - NEURALGIA [None]
  - JOINT DISLOCATION [None]
  - BONE FRAGMENTATION [None]
  - NECK PAIN [None]
